FAERS Safety Report 9558220 (Version 1)
Quarter: 2013Q3

REPORT INFORMATION
  Report Type: Report from Study
  Country: BR (occurrence: BR)
  Receive Date: 20130926
  Receipt Date: 20130926
  Transmission Date: 20140515
  Serious: Yes (Disabling, Other)
  Sender: FDA-Public Use
  Company Number: PHHY2013BR105472

PATIENT
  Age: 65 Year
  Sex: Male

DRUGS (5)
  1. AZITHROMYCIN [Suspect]
     Indication: CHRONIC OBSTRUCTIVE PULMONARY DISEASE
  2. PREDNISONE [Suspect]
     Indication: CHRONIC OBSTRUCTIVE PULMONARY DISEASE
     Dosage: 30 MG, PER DAY
  3. PRANDIN [Concomitant]
     Indication: TYPE 2 DIABETES MELLITUS
  4. GLUCOFORMIN [Concomitant]
     Indication: TYPE 2 DIABETES MELLITUS
  5. BRONCHODILATORS [Concomitant]

REACTIONS (8)
  - Chronic obstructive pulmonary disease [Recovering/Resolving]
  - Dyspnoea exertional [Recovering/Resolving]
  - Obstructive airways disorder [Recovering/Resolving]
  - Productive cough [Recovering/Resolving]
  - Breath sounds abnormal [Recovering/Resolving]
  - Pharyngeal cancer [Unknown]
  - Emphysema [Unknown]
  - Activities of daily living impaired [Unknown]
